FAERS Safety Report 9285258 (Version 2)
Quarter: 2013Q2

REPORT INFORMATION
  Report Type: Spontaneous
  Country: MX (occurrence: MX)
  Receive Date: 20130513
  Receipt Date: 20130523
  Transmission Date: 20140414
  Serious: Yes (Death, Other)
  Sender: FDA-Public Use
  Company Number: MX-NOVOPROD-377241

PATIENT
  Age: 69 Year
  Sex: Male
  Weight: 120 kg

DRUGS (5)
  1. VICTOZA [Suspect]
     Dosage: 0.6 MG, QD
     Route: 058
     Dates: start: 20130401, end: 20130421
  2. VICTOZA [Suspect]
     Dosage: UNK
  3. METFORMIN [Concomitant]
     Dosage: 1500 MG, QD
     Route: 048
     Dates: start: 2009
  4. PIOGLITAZON [Concomitant]
     Dosage: 15 MG, QD
     Route: 048
     Dates: start: 2011
  5. TEMISARTAN [Concomitant]

REACTIONS (5)
  - Cardio-respiratory arrest [Fatal]
  - Acute respiratory failure [Not Recovered/Not Resolved]
  - Weight decreased [Not Recovered/Not Resolved]
  - Hyperglycaemia [Unknown]
  - Fatigue [Not Recovered/Not Resolved]
